FAERS Safety Report 12740256 (Version 1)
Quarter: 2016Q3

REPORT INFORMATION
  Report Type: Report from Study
  Country: US (occurrence: US)
  Receive Date: 20160913
  Receipt Date: 20160913
  Transmission Date: 20161109
  Serious: Yes (Other)
  Sender: FDA-Public Use
  Company Number: US-BIOGEN-2016BI00239368

PATIENT
  Age: 47 Year
  Sex: Female

DRUGS (2)
  1. TECFIDERA [Suspect]
     Active Substance: DIMETHYL FUMARATE
     Indication: MULTIPLE SCLEROSIS
     Dosage: MAINTENANCE DOSE
     Route: 048
     Dates: start: 20140829
  2. TECFIDERA [Suspect]
     Active Substance: DIMETHYL FUMARATE
     Route: 065
     Dates: start: 20140722

REACTIONS (10)
  - Memory impairment [Not Recovered/Not Resolved]
  - Road traffic accident [Recovered/Resolved]
  - Rib fracture [Recovered/Resolved]
  - Amnesia [Recovered/Resolved]
  - Skull fracture [Recovered/Resolved]
  - Concussion [Recovered/Resolved]
  - Bone contusion [Recovered/Resolved]
  - Contusion [Recovered/Resolved]
  - Visual impairment [Recovered/Resolved]
  - Drug dose omission [Recovered/Resolved]

NARRATIVE: CASE EVENT DATE: 201604
